FAERS Safety Report 13175271 (Version 2)
Quarter: 2017Q1

REPORT INFORMATION
  Report Type: Spontaneous
  Country: JP (occurrence: JP)
  Receive Date: 20170201
  Receipt Date: 20170202
  Transmission Date: 20170428
  Serious: Yes (Other)
  Sender: FDA-Public Use
  Company Number: JP-PFIZER INC-2017040912

PATIENT
  Age: 6 Decade
  Sex: Male

DRUGS (1)
  1. CELECOX [Suspect]
     Active Substance: CELECOXIB
     Dosage: 200 MG, DAILY
     Route: 048

REACTIONS (1)
  - Loss of consciousness [Recovered/Resolved]
